FAERS Safety Report 4779850-8 (Version None)
Quarter: 2005Q3

REPORT INFORMATION
  Report Type: 
  Country: None (occurrence: None)
  Receive Date: 20050914
  Receipt Date: 20041006
  Transmission Date: 20060218
  Serious: Yes (Death, Hospitalization)
  Sender: FDA-Public Use
  Company Number: 163-20785-04020699

PATIENT
  Age: 45 Year
  Sex: Male
  Weight: 101 kg

DRUGS (25)
  1. THALOMID [Suspect]
     Indication: MULTIPLE MYELOMA
     Dosage: 200 MG, DAILY, ORAL;  100 MG, ORAL
     Route: 048
     Dates: start: 20040614, end: 20040629
  2. THALOMID [Suspect]
     Indication: MULTIPLE MYELOMA
     Dosage: 200 MG, DAILY, ORAL;  100 MG, ORAL
     Route: 048
     Dates: start: 20040630, end: 20040803
  3. DEXAMETHASONE [Suspect]
     Indication: MULTIPLE MYELOMA
     Dosage: 40 MG, ORAL
     Route: 048
     Dates: end: 20040101
  4. DEXAMETHASONE [Suspect]
     Indication: MULTIPLE MYELOMA
     Dosage: 40 MG, ORAL
     Route: 048
     Dates: start: 20040105, end: 20040108
  5. DEXAMETHASONE [Suspect]
     Indication: MULTIPLE MYELOMA
     Dosage: 40 MG, ORAL
     Route: 048
     Dates: start: 20040122, end: 20040125
  6. DEXAMETHASONE [Suspect]
     Indication: MULTIPLE MYELOMA
     Dosage: 40 MG, ORAL
     Route: 048
     Dates: start: 20040101, end: 20040130
  7. CYTOXAN [Suspect]
     Indication: MULTIPLE MYELOMA
     Dosage: 800 MG, INTRAVENOUS
     Route: 042
     Dates: start: 20040105, end: 20040108
  8. CYTOXAN [Suspect]
     Indication: MULTIPLE MYELOMA
     Dosage: 800 MG, INTRAVENOUS
     Route: 042
     Dates: start: 20040220, end: 20040224
  9. ETOPOSIDE [Suspect]
     Indication: MULTIPLE MYELOMA
     Dosage: 80 MG, INTRAVENOUS
     Route: 042
     Dates: start: 20040105, end: 20040108
  10. CISPLATIN [Suspect]
     Indication: MULTIPLE MYELOMA
     Dosage: 20 MG, INTRAVENOUS
     Route: 042
     Dates: start: 20040105, end: 20040108
  11. ADRIAMYCIN PFS [Suspect]
     Indication: MULTIPLE MYELOMA
     Dates: start: 20040220, end: 20040224
  12. VINCRISTINE [Suspect]
     Indication: MULTIPLE MYELOMA
  13. ACYCLOVIR [Concomitant]
  14. FOLIC ACID [Concomitant]
  15. MULTI-VITAMINS [Concomitant]
  16. HEPARIN FLUSH (HEPARIN) [Concomitant]
  17. PANTOPRAZOLE [Concomitant]
  18. NITROGLYCERIN (SPRAY  (NOT INHALATION)) [Concomitant]
  19. CALCIUM CARBONATE [Concomitant]
  20. METOPROLOL [Concomitant]
  21. FLUCONAZOLE [Concomitant]
  22. PAROXETINE HCL [Concomitant]
  23. MARINOL [Concomitant]
  24. HYDROCORTISONE [Concomitant]
  25. REGLAN [Concomitant]

REACTIONS (25)
  - ABDOMINAL PAIN [None]
  - BRADYCARDIA [None]
  - COLITIS [None]
  - CONFUSIONAL STATE [None]
  - DEATH [None]
  - DEHYDRATION [None]
  - DIARRHOEA [None]
  - DISEASE PROGRESSION [None]
  - DIZZINESS [None]
  - GASTROENTERITIS [None]
  - GASTROINTESTINAL HAEMORRHAGE [None]
  - GENERALISED OEDEMA [None]
  - MUCOSAL INFLAMMATION [None]
  - NAUSEA [None]
  - NEUROPATHY [None]
  - NEUTROPENIA [None]
  - ORTHOSTATIC HYPOTENSION [None]
  - PANCYTOPENIA [None]
  - PNEUMONIA [None]
  - PYREXIA [None]
  - RENAL FAILURE ACUTE [None]
  - SEPTIC SHOCK [None]
  - STAPHYLOCOCCAL INFECTION [None]
  - THROMBOCYTOPENIA [None]
  - VOMITING [None]
